APPROVED DRUG PRODUCT: POTASSIUM CHLORIDE
Active Ingredient: POTASSIUM CHLORIDE
Strength: 8MEQ
Dosage Form/Route: CAPSULE, EXTENDED RELEASE;ORAL
Application: A203002 | Product #001
Applicant: LUPIN LTD
Approved: Dec 18, 2015 | RLD: No | RS: No | Type: DISCN